FAERS Safety Report 6162847-3 (Version None)
Quarter: 2009Q2

REPORT INFORMATION
  Report Type: 
  Country: None (occurrence: None)
  Receive Date: 20090421
  Receipt Date: 20081024
  Transmission Date: 20091009
  Serious: No
  Sender: FDA-Public Use
  Company Number: US-ASTRAZENECA-2008UW23871

PATIENT
  Age: 60 Year
  Sex: Female

DRUGS (8)
  1. TOPROL-XL [Suspect]
     Indication: HYPERTENSION
     Route: 048
     Dates: start: 20081001
  2. SINGULAIR [Concomitant]
  3. NEXIUM [Concomitant]
  4. PROAIR HFA [Concomitant]
  5. RESTORIL [Concomitant]
  6. ALPRAZOLAM [Concomitant]
  7. LASIX [Concomitant]
  8. ALDACTONE [Concomitant]

REACTIONS (2)
  - ABNORMAL BEHAVIOUR [None]
  - FATIGUE [None]
